FAERS Safety Report 5290198-8 (Version None)
Quarter: 2007Q2

REPORT INFORMATION
  Report Type: 
  Country: None (occurrence: None)
  Receive Date: 20070402
  Receipt Date: 20070315
  Transmission Date: 20071010
  Serious: Yes (Other)
  Sender: FDA-Public Use
  Company Number: SPV1-2007-01490

PATIENT
  Age: 46 Year
  Sex: Male
  Weight: 171.4 kg

DRUGS (11)
  1. FOSRENOL [Suspect]
     Indication: HYPERPHOSPHATAEMIA
     Dosage: 500 MG, 3X/DAY:TID
     Dates: start: 20040701
  2. ZYRTEC [Concomitant]
  3. LEVOTHROID [Concomitant]
  4. TOPROL-XL [Concomitant]
  5. LIPITOR [Concomitant]
  6. HYDROXY2-HCL [Concomitant]
  7. METOPROLOL SUCCINATE [Concomitant]
  8. FOLBEE /01079901/ (CYANOCOBALAMIN, FOLIC ACID, PYRIDOXINE HYDROCHLORID [Concomitant]
  9. ACTOS /01460201/ (PIOGLITAZONE) [Concomitant]
  10. PHOSLO [Concomitant]
  11. PREDNISOLONE ACETATE [Concomitant]

REACTIONS (5)
  - CATARACT [None]
  - DRUG INEFFECTIVE [None]
  - GLAUCOMA [None]
  - HYPERPHOSPHATAEMIA [None]
  - HYPERTHYROIDISM [None]
